FAERS Safety Report 5796801-8 (Version None)
Quarter: 2008Q3

REPORT INFORMATION
  Report Type: 
  Country: None (occurrence: None)
  Receive Date: 20080701
  Receipt Date: 20080620
  Transmission Date: 20090109
  Serious: Yes (Hospitalization)
  Sender: FDA-Public Use
  Company Number: CO-BAXTER-2008BH001459

PATIENT
  Age: 43 Year
  Sex: Male

DRUGS (1)
  1. TISSUCOL/TISSEEL KIT STIM3 [Suspect]
     Indication: HAEMOSTASIS
     Route: 065

REACTIONS (1)
  - MENINGITIS [None]
